FAERS Safety Report 15616995 (Version 1)
Quarter: 2018Q4

REPORT INFORMATION
  Report Type: Spontaneous
  Country: LV (occurrence: LV)
  Receive Date: 20181114
  Receipt Date: 20181114
  Transmission Date: 20190205
  Serious: Yes (Other)
  Sender: FDA-Public Use
  Company Number: LV-LPDUSPRD-20182142

PATIENT
  Age: 50 Year

DRUGS (2)
  1. VENOFER [Suspect]
     Active Substance: IRON SUCROSE
     Dosage: 25 ML,1 TOTAL
     Route: 042
     Dates: start: 20181017, end: 20181017
  2. OXYTOCIN. [Concomitant]
     Active Substance: OXYTOCIN
     Dosage: 5 IU,FIVE UNITS TWICE A DAY
     Route: 030
     Dates: start: 20181012, end: 20181013

REACTIONS (5)
  - Localised oedema [Unknown]
  - Pain in extremity [Unknown]
  - Panic reaction [Recovering/Resolving]
  - Tremor [Recovering/Resolving]
  - Palpitations [Unknown]

NARRATIVE: CASE EVENT DATE: 20181017
